FAERS Safety Report 20256954 (Version 2)
Quarter: 2022Q1

REPORT INFORMATION
  Report Type: Other
  Country: PT (occurrence: PT)
  Receive Date: 20211230
  Receipt Date: 20220117
  Transmission Date: 20220423
  Serious: Yes (Other)
  Sender: FDA-Public Use
  Company Number: PT-ROCHE-2981846

PATIENT
  Age: 43 Year
  Sex: Female

DRUGS (1)
  1. RITUXIMAB [Suspect]
     Active Substance: RITUXIMAB
     Indication: Diffuse large B-cell lymphoma recurrent
     Dosage: UNK, CYCLIC (SEVERAL CYCLES)
     Route: 065

REACTIONS (4)
  - Lymphopenia [Recovered/Resolved]
  - Hypogammaglobulinaemia [Recovered/Resolved]
  - Infection [Recovered/Resolved]
  - Campylobacter infection [Not Recovered/Not Resolved]
